FAERS Safety Report 13515524 (Version 1)
Quarter: 2017Q2

REPORT INFORMATION
  Report Type: Spontaneous
  Country: AT (occurrence: AT)
  Receive Date: 20170504
  Receipt Date: 20170504
  Transmission Date: 20170830
  Serious: Yes (Hospitalization)
  Sender: FDA-Public Use
  Company Number: AT-ABBVIE-17P-009-1965331-00

PATIENT
  Age: 2 Year

DRUGS (1)
  1. VALPROIC ACID. [Suspect]
     Active Substance: VALPROIC ACID
     Indication: PRODUCT USED FOR UNKNOWN INDICATION
     Dosage: 107.1 MG/KG
     Route: 048

REACTIONS (3)
  - Seizure [Unknown]
  - Toxicity to various agents [Unknown]
  - Somnolence [Unknown]
